FAERS Safety Report 8801477 (Version 2)
Quarter: 2015Q1

REPORT INFORMATION
  Report Type: Report from Study
  Country: US (occurrence: US)
  Receive Date: 20120921
  Receipt Date: 20150324
  Transmission Date: 20150721
  Serious: Yes (Death)
  Sender: FDA-Public Use
  Company Number: US-ROCHE-1097594

PATIENT
  Sex: Male
  Weight: 71.73 kg

DRUGS (18)
  1. ATIVAN [Concomitant]
     Active Substance: LORAZEPAM
     Route: 065
  2. PREDNISONE. [Concomitant]
     Active Substance: PREDNISONE
     Route: 065
  3. LORTAB (UNITED STATES) [Concomitant]
  4. XELODA [Concomitant]
     Active Substance: CAPECITABINE
     Route: 065
  5. DECADRON [Concomitant]
     Active Substance: DEXAMETHASONE
     Route: 065
  6. MS CONTIN [Concomitant]
     Active Substance: MORPHINE SULFATE
  7. MARINOL (UNITED STATES) [Concomitant]
  8. DEXAMETHASONE. [Concomitant]
     Active Substance: DEXAMETHASONE
     Route: 065
  9. EMEND [Concomitant]
     Active Substance: APREPITANT
     Route: 065
  10. AVASTIN [Suspect]
     Active Substance: BEVACIZUMAB
     Indication: CHOLANGIOCARCINOMA
     Route: 042
     Dates: start: 20080520
  11. ZOCOR [Concomitant]
     Active Substance: SIMVASTATIN
  12. OXALIPLATIN. [Concomitant]
     Active Substance: OXALIPLATIN
     Route: 042
  13. KYTRIL [Concomitant]
     Active Substance: GRANISETRON HYDROCHLORIDE
     Route: 065
  14. PREDNISONE. [Concomitant]
     Active Substance: PREDNISONE
     Route: 065
  15. ZOMETA [Concomitant]
     Active Substance: ZOLEDRONIC ACID
     Route: 065
  16. SYNTHROID [Concomitant]
     Active Substance: LEVOTHYROXINE SODIUM
     Route: 065
  17. PHENAZINE [Concomitant]
  18. PERCOCET [Concomitant]
     Active Substance: ACETAMINOPHEN\OXYCODONE HYDROCHLORIDE

REACTIONS (6)
  - Nausea [Unknown]
  - Death [Fatal]
  - Musculoskeletal pain [Unknown]
  - Decreased appetite [Unknown]
  - Weight decreased [Unknown]
  - Back pain [Unknown]
